FAERS Safety Report 24691523 (Version 1)
Quarter: 2024Q4

REPORT INFORMATION
  Report Type: Spontaneous
  Country: IN (occurrence: IN)
  Receive Date: 20241203
  Receipt Date: 20241203
  Transmission Date: 20250114
  Serious: Yes (Other)
  Sender: PFIZER
  Company Number: IN-PFIZER INC-2019446351

PATIENT
  Age: 75 Year
  Sex: Female

DRUGS (4)
  1. CRIZOTINIB [Suspect]
     Active Substance: CRIZOTINIB
     Indication: Non-small cell lung cancer
     Dosage: 250 MG, 2X/DAY
     Route: 048
     Dates: start: 20180317
  2. CRIZOTINIB [Suspect]
     Active Substance: CRIZOTINIB
     Dosage: 250 MG, 1X/DAY
     Route: 048
  3. CRIZOTINIB [Suspect]
     Active Substance: CRIZOTINIB
     Dosage: 250 MG, ALTERNATE DAY (ONCE A DAY FOR ALTERNATE DAYS)
     Route: 048
  4. CRIZOTINIB [Suspect]
     Active Substance: CRIZOTINIB
     Dosage: 250 MG, 1X/DAY (FOR 3 MONTHS, 1-0
     Route: 048
     Dates: start: 2024

REACTIONS (11)
  - Inguinal hernia [Recovering/Resolving]
  - COVID-19 [Unknown]
  - Peripheral swelling [Unknown]
  - Pyrexia [Unknown]
  - Blood creatinine increased [Recovering/Resolving]
  - Oedema peripheral [Unknown]
  - Oedema [Unknown]
  - Vomiting [Unknown]
  - Nausea [Unknown]
  - Haemoglobin decreased [Not Recovered/Not Resolved]
  - Off label use [Unknown]

NARRATIVE: CASE EVENT DATE: 20220101
